FAERS Safety Report 25889640 (Version 1)
Quarter: 2025Q4

REPORT INFORMATION
  Report Type: Spontaneous
  Country: US (occurrence: US)
  Receive Date: 20251007
  Receipt Date: 20251007
  Transmission Date: 20260117
  Serious: Yes (Other)
  Sender: MYLAN
  Company Number: US-MYLANLABS-2025M1085003

PATIENT
  Age: 63 Year
  Sex: Male

DRUGS (28)
  1. BUPRENORPHINE\NALOXONE [Suspect]
     Active Substance: BUPRENORPHINE\NALOXONE
     Indication: Neuralgia
     Dosage: UNK
  2. BUPRENORPHINE\NALOXONE [Suspect]
     Active Substance: BUPRENORPHINE\NALOXONE
     Indication: Cancer pain
     Dosage: UNK
     Route: 065
  3. BUPRENORPHINE\NALOXONE [Suspect]
     Active Substance: BUPRENORPHINE\NALOXONE
     Dosage: UNK
     Route: 065
  4. BUPRENORPHINE\NALOXONE [Suspect]
     Active Substance: BUPRENORPHINE\NALOXONE
     Dosage: UNK
  5. KETAMINE [Suspect]
     Active Substance: KETAMINE
     Indication: Neuralgia
     Dosage: 10 MILLIGRAM, Q6H
     Route: 048
  6. KETAMINE [Suspect]
     Active Substance: KETAMINE
     Indication: Cancer pain
     Dosage: 10 MILLIGRAM, Q6H
  7. KETAMINE [Suspect]
     Active Substance: KETAMINE
     Dosage: 10 MILLIGRAM, Q6H
  8. KETAMINE [Suspect]
     Active Substance: KETAMINE
     Dosage: 10 MILLIGRAM, Q6H
     Route: 048
  9. KETAMINE [Suspect]
     Active Substance: KETAMINE
     Dosage: 30 MILLIGRAM, Q6H
  10. KETAMINE [Suspect]
     Active Substance: KETAMINE
     Dosage: 30 MILLIGRAM, Q6H
  11. KETAMINE [Suspect]
     Active Substance: KETAMINE
     Dosage: 30 MILLIGRAM, Q6H
     Route: 048
  12. KETAMINE [Suspect]
     Active Substance: KETAMINE
     Dosage: 30 MILLIGRAM, Q6H
     Route: 048
  13. KETAMINE [Suspect]
     Active Substance: KETAMINE
     Dosage: 25 MILLIGRAM, Q6H
     Route: 048
  14. KETAMINE [Suspect]
     Active Substance: KETAMINE
     Dosage: 25 MILLIGRAM, Q6H
  15. KETAMINE [Suspect]
     Active Substance: KETAMINE
     Dosage: 25 MILLIGRAM, Q6H
  16. KETAMINE [Suspect]
     Active Substance: KETAMINE
     Dosage: 25 MILLIGRAM, Q6H
     Route: 048
  17. KETAMINE [Suspect]
     Active Substance: KETAMINE
     Dosage: 35 MILLIGRAM
  18. KETAMINE [Suspect]
     Active Substance: KETAMINE
     Dosage: 35 MILLIGRAM
  19. KETAMINE [Suspect]
     Active Substance: KETAMINE
     Dosage: 35 MILLIGRAM
     Route: 048
  20. KETAMINE [Suspect]
     Active Substance: KETAMINE
     Dosage: 35 MILLIGRAM
     Route: 048
  21. KETAMINE [Suspect]
     Active Substance: KETAMINE
     Dosage: 40 MILLIGRAM, TID
  22. KETAMINE [Suspect]
     Active Substance: KETAMINE
     Dosage: 40 MILLIGRAM, TID
  23. KETAMINE [Suspect]
     Active Substance: KETAMINE
     Dosage: 40 MILLIGRAM, TID
     Route: 048
  24. KETAMINE [Suspect]
     Active Substance: KETAMINE
     Dosage: 40 MILLIGRAM, TID
     Route: 048
  25. KETAMINE [Suspect]
     Active Substance: KETAMINE
     Dosage: 50 MILLIGRAM
  26. KETAMINE [Suspect]
     Active Substance: KETAMINE
     Dosage: 50 MILLIGRAM
     Route: 048
  27. KETAMINE [Suspect]
     Active Substance: KETAMINE
     Dosage: 50 MILLIGRAM
  28. KETAMINE [Suspect]
     Active Substance: KETAMINE
     Dosage: 50 MILLIGRAM
     Route: 048

REACTIONS (3)
  - Drug ineffective [Unknown]
  - Disease progression [Unknown]
  - Off label use [Unknown]
